FAERS Safety Report 8951661 (Version 1)
Quarter: 2012Q4

REPORT INFORMATION
  Report Type: Report from Study
  Country: AU (occurrence: AU)
  Receive Date: 20121204
  Receipt Date: 20121204
  Transmission Date: 20130627
  Serious: Yes (Hospitalization)
  Sender: FDA-Public Use
  Company Number: AU-BAXTER-2012BAX025429

PATIENT
  Age: 52 Year
  Sex: Female
  Weight: 98 kg

DRUGS (17)
  1. ENDOXAN 1000 MG, POUDRE POUR SOLUTION INJECTABLE [Suspect]
     Indication: BREAST CANCER
     Route: 042
     Dates: start: 20090327
  2. BEVACIZUMAB [Suspect]
     Indication: BREAST CANCER
     Route: 042
     Dates: start: 20090327
  3. FLUOROURACIL [Suspect]
     Indication: BREAST CANCER
     Route: 042
     Dates: start: 20090327
  4. EPIRUBICIN [Suspect]
     Indication: BREAST CANCER
     Route: 042
     Dates: start: 20090327
  5. THYROXINE [Concomitant]
     Indication: DRUG USE FOR UNKNOWN INDICATION
     Route: 065
     Dates: start: 1976
  6. ATACAND [Concomitant]
     Indication: DRUG USE FOR UNKNOWN INDICATION
     Route: 065
     Dates: start: 2007
  7. ZIMSTAT [Concomitant]
     Indication: DRUG USE FOR UNKNOWN INDICATION
     Route: 065
     Dates: start: 2007
  8. MAXOLON [Concomitant]
     Indication: DRUG USE FOR UNKNOWN INDICATION
     Route: 065
     Dates: start: 200904
  9. KYTRIL [Concomitant]
     Indication: DRUG USE FOR UNKNOWN INDICATION
     Route: 065
     Dates: start: 20090327
  10. DEXMETHASONE [Concomitant]
     Indication: DRUG USE FOR UNKNOWN INDICATION
     Route: 065
     Dates: start: 20090327
  11. APREPITANT [Concomitant]
     Indication: DRUG USE FOR UNKNOWN INDICATION
     Route: 065
     Dates: start: 20090327
  12. PEGFILGRASTIM [Concomitant]
     Indication: DRUG USE FOR UNKNOWN INDICATION
     Route: 065
     Dates: start: 20090328
  13. PANTOPRAZOLE [Concomitant]
     Indication: DRUG USE FOR UNKNOWN INDICATION
     Route: 065
     Dates: start: 20090327
  14. NATRILIX [Concomitant]
     Indication: DRUG USE FOR UNKNOWN INDICATION
     Route: 065
     Dates: start: 2004
  15. ZOFRAN [Concomitant]
     Indication: DRUG USE FOR UNKNOWN INDICATION
     Route: 065
     Dates: start: 20090327
  16. LORAZEPAM [Concomitant]
     Indication: DRUG USE FOR UNKNOWN INDICATION
     Route: 065
     Dates: start: 20090426
  17. ATIVAN [Concomitant]
     Indication: DRUG USE FOR UNKNOWN INDICATION
     Route: 065
     Dates: start: 200904

REACTIONS (1)
  - Gastrointestinal infection [Recovered/Resolved]
